FAERS Safety Report 10377693 (Version 5)
Quarter: 2016Q3

REPORT INFORMATION
  Report Type: Report from Study
  Country: MX (occurrence: MX)
  Receive Date: 20140812
  Receipt Date: 20160926
  Transmission Date: 20161109
  Serious: Yes (Death, Hospitalization, Other)
  Sender: FDA-Public Use
  Company Number: PHHY2014MX099018

PATIENT
  Age: 79 Year
  Sex: Male

DRUGS (4)
  1. CO-DIOVAN [Suspect]
     Active Substance: HYDROCHLOROTHIAZIDE\VALSARTAN
     Indication: HYPERTENSION
     Dosage: 1 DF (HYDROCHLOROTHIAZIDE 12.5 MG, VALSARTAN160 MG), QD
     Route: 048
     Dates: end: 201607
  2. CO-DIOVAN [Suspect]
     Active Substance: HYDROCHLOROTHIAZIDE\VALSARTAN
     Indication: GLAUCOMA
     Dosage: 2 DF(HYDROCHLOROTHIAZIDE 12.5 MG, VALSARTAN160 MG), QD
     Route: 048
  3. ASPIRIN PROTECT [Concomitant]
     Active Substance: ASPIRIN
     Indication: PRODUCT USED FOR UNKNOWN INDICATION
     Dosage: 1 DF, QD
     Route: 065
  4. EUGLUCON [Concomitant]
     Active Substance: GLYBURIDE
     Indication: PRODUCT USED FOR UNKNOWN INDICATION
     Dosage: 2 DF, QD
     Route: 065

REACTIONS (10)
  - Renal cancer [Fatal]
  - General physical condition abnormal [Unknown]
  - Malaise [Unknown]
  - Product use issue [Unknown]
  - Fall [Recovered/Resolved]
  - Pain [Recovered/Resolved]
  - Testicle adenoma [Recovered/Resolved]
  - Glaucoma [Unknown]
  - Hip fracture [Not Recovered/Not Resolved]
  - Diabetes mellitus [Unknown]

NARRATIVE: CASE EVENT DATE: 20160715
